FAERS Safety Report 15720093 (Version 6)
Quarter: 2019Q4

REPORT INFORMATION
  Report Type: Report from Study
  Country: US (occurrence: US)
  Receive Date: 20181213
  Receipt Date: 20191031
  Transmission Date: 20200122
  Serious: Yes (Death, Life-Threatening, Other)
  Sender: FDA-Public Use
  Company Number: PHEH2018US051085

PATIENT
  Age: 2 Year
  Sex: Female

DRUGS (4)
  1. KYMRIAH [Suspect]
     Active Substance: TISAGENLECLEUCEL
     Indication: B-CELL TYPE ACUTE LEUKAEMIA
     Dosage: ONCE/SINGLE
     Route: 041
     Dates: start: 2018
  2. KYMRIAH [Suspect]
     Active Substance: TISAGENLECLEUCEL
     Indication: ACUTE LYMPHOCYTIC LEUKAEMIA
  3. FLUDARABINE [Concomitant]
     Active Substance: FLUDARABINE PHOSPHATE
     Indication: CHEMOTHERAPY
     Route: 065
  4. CYCLOPHOSPHAMIDE. [Concomitant]
     Active Substance: CYCLOPHOSPHAMIDE
     Indication: CHEMOTHERAPY
     Route: 065

REACTIONS (18)
  - White blood cell count decreased [Unknown]
  - Staphylococcal infection [Unknown]
  - Respiratory failure [Unknown]
  - Cytokine release syndrome [Fatal]
  - B-cell type acute leukaemia [Fatal]
  - Tumour lysis syndrome [Unknown]
  - Neoplasm malignant [Unknown]
  - Minimal residual disease [Unknown]
  - Cardiac failure [Unknown]
  - Acute myeloid leukaemia [Unknown]
  - Haemoglobin decreased [Unknown]
  - Pyrexia [Fatal]
  - Hypoxia [Fatal]
  - Haematocrit decreased [Unknown]
  - Second primary malignancy [Unknown]
  - Malignant neoplasm progression [Fatal]
  - Platelet count decreased [Unknown]
  - Treatment failure [Unknown]
